FAERS Safety Report 15273362 (Version 2)
Quarter: 2021Q4

REPORT INFORMATION
  Report Type: Report from Study
  Country: US (occurrence: US)
  Receive Date: 20180813
  Receipt Date: 20211202
  Transmission Date: 20220303
  Serious: Yes (Hospitalization, Other)
  Sender: FDA-Public Use
  Company Number: US-SHIRE-US201830838

PATIENT
  Sex: Female

DRUGS (1)
  1. CARBAMAZEPINE [Suspect]
     Active Substance: CARBAMAZEPINE
     Indication: Product used for unknown indication
     Dosage: 500 MILLIGRAM, Q12H
     Route: 048

REACTIONS (3)
  - Hip fracture [Unknown]
  - Fall [Unknown]
  - Product availability issue [Unknown]
